FAERS Safety Report 22130073 (Version 1)
Quarter: 2023Q1

REPORT INFORMATION
  Report Type: Spontaneous
  Country: US (occurrence: None)
  Receive Date: 20230322
  Receipt Date: 20230322
  Transmission Date: 20230418
  Serious: No
  Sender: FDA-Public Use
  Company Number: None

PATIENT
  Sex: 0

DRUGS (2)
  1. DIPHENHYDRAMINE [Suspect]
     Active Substance: DIPHENHYDRAMINE
     Dosage: FREQUENCY : AT BEDTIME;?
  2. DIPHENHYDRAMINE [Suspect]
     Active Substance: DIPHENHYDRAMINE
     Dosage: FREQUENCY : TWICE A DAY;?

REACTIONS (1)
  - Anticholinergic syndrome [None]
